FAERS Safety Report 24308218 (Version 2)
Quarter: 2024Q3

REPORT INFORMATION
  Report Type: Spontaneous
  Country: FR (occurrence: FR)
  Receive Date: 20240911
  Receipt Date: 20240923
  Transmission Date: 20241016
  Serious: Yes (Death)
  Sender: TEVA
  Company Number: FR-TEVA-VS-3241104

PATIENT
  Age: 52 Year
  Sex: Female

DRUGS (12)
  1. GEFITINIB [Suspect]
     Active Substance: GEFITINIB
     Indication: Metastatic bronchial carcinoma
     Route: 065
  2. ALECTINIB [Suspect]
     Active Substance: ALECTINIB
     Indication: Metastatic bronchial carcinoma
     Route: 065
  3. BEVACIZUMAB [Suspect]
     Active Substance: BEVACIZUMAB
     Indication: Metastatic bronchial carcinoma
     Route: 065
  4. OSIMERTINIB [Suspect]
     Active Substance: OSIMERTINIB
     Indication: Metastatic bronchial carcinoma
     Route: 065
  5. OSIMERTINIB [Suspect]
     Active Substance: OSIMERTINIB
     Indication: Metastatic bronchial carcinoma
     Route: 065
     Dates: end: 202105
  6. TRAMETINIB [Suspect]
     Active Substance: TRAMETINIB
     Indication: Adenocarcinoma
     Route: 065
  7. PEMETREXED [Suspect]
     Active Substance: PEMETREXED
     Indication: Metastatic bronchial carcinoma
     Dosage: RECEIVED PEMETREXED 6-COURSES
     Route: 065
     Dates: end: 202001
  8. DABRAFENIB [Suspect]
     Active Substance: DABRAFENIB
     Indication: Metastatic bronchial carcinoma
     Route: 065
  9. CARBOPLATIN [Suspect]
     Active Substance: CARBOPLATIN
     Indication: Metastatic bronchial carcinoma
     Route: 065
     Dates: end: 202105
  10. CARBOPLATIN [Suspect]
     Active Substance: CARBOPLATIN
     Indication: Metastatic bronchial carcinoma
     Dosage: RECEIVED CARBOPLATIN 6-COURSES
     Route: 065
     Dates: end: 202001
  11. GEMCITABINE [Suspect]
     Active Substance: GEMCITABINE
     Indication: Metastatic bronchial carcinoma
     Route: 065
     Dates: end: 202105
  12. PACLITAXEL [Suspect]
     Active Substance: PACLITAXEL
     Indication: Metastatic bronchial carcinoma
     Route: 065

REACTIONS (1)
  - Drug ineffective [Fatal]
